FAERS Safety Report 9431083 (Version 1)
Quarter: 2013Q3

REPORT INFORMATION
  Report Type: Spontaneous
  Country: US (occurrence: US)
  Receive Date: 20130730
  Receipt Date: 20130730
  Transmission Date: 20140515
  Serious: Yes (Hospitalization)
  Sender: FDA-Public Use
  Company Number: US-BRISTOL-MYERS SQUIBB COMPANY-19133016

PATIENT
  Age: 47 Year
  Sex: Male

DRUGS (3)
  1. BYDUREON [Suspect]
     Dates: start: 20130410, end: 20130708
  2. METFORMIN [Concomitant]
  3. GLIPIRIDE [Concomitant]

REACTIONS (1)
  - Pancreatitis [Unknown]
